FAERS Safety Report 17536197 (Version 1)
Quarter: 2020Q1

REPORT INFORMATION
  Report Type: Spontaneous
  Country: IT (occurrence: IT)
  Receive Date: 20200313
  Receipt Date: 20200313
  Transmission Date: 20200409
  Serious: Yes (Life-Threatening)
  Sender: FDA-Public Use
  Company Number: IT-TEVA-2020-IT-1198985

PATIENT
  Age: 58 Year
  Sex: Female

DRUGS (1)
  1. AMOXICILLINA ACIDO CLAVULANICO TEVA [Suspect]
     Active Substance: AMOXICILLIN\CLAVULANIC ACID
     Indication: TOOTHACHE
     Dosage: 1 DF
     Route: 048
     Dates: start: 20200208, end: 20200208

REACTIONS (8)
  - Dyspnoea [Recovering/Resolving]
  - Malaise [Recovering/Resolving]
  - Lip swelling [Recovering/Resolving]
  - Respiratory disorder [Recovering/Resolving]
  - Retching [Recovering/Resolving]
  - Asthenia [Recovering/Resolving]
  - Urticaria [Recovering/Resolving]
  - Anaphylactic shock [Recovering/Resolving]

NARRATIVE: CASE EVENT DATE: 20200208
